FAERS Safety Report 15886183 (Version 3)
Quarter: 2019Q1

REPORT INFORMATION
  Report Type: Spontaneous
  Country: US (occurrence: US)
  Receive Date: 20190129
  Receipt Date: 20190219
  Transmission Date: 20190417
  Serious: Yes (Life-Threatening, Hospitalization, Other)
  Sender: FDA-Public Use
  Company Number: US-OTSUKA-2019_002015

PATIENT
  Age: 52 Year
  Sex: Female
  Weight: 157 kg

DRUGS (7)
  1. TRAZODONE [Interacting]
     Active Substance: TRAZODONE HYDROCHLORIDE
     Dosage: 100 MG, QD
     Route: 048
  2. REXULTI [Interacting]
     Active Substance: BREXPIPRAZOLE
     Indication: ADJUVANT THERAPY
     Dosage: 1 MG, QD
     Route: 048
  3. REXULTI [Suspect]
     Active Substance: BREXPIPRAZOLE
     Indication: MAJOR DEPRESSION
     Dosage: 0.5 MG, QD
     Route: 048
  4. TRAZODONE [Interacting]
     Active Substance: TRAZODONE HYDROCHLORIDE
     Indication: PRODUCT USED FOR UNKNOWN INDICATION
     Dosage: 150 MG, QD
     Route: 048
  5. REXULTI [Interacting]
     Active Substance: BREXPIPRAZOLE
     Dosage: 2 MG, QD
     Route: 048
  6. REXULTI [Interacting]
     Active Substance: BREXPIPRAZOLE
     Dosage: 3 MG, QD
     Route: 048
  7. REXULTI [Interacting]
     Active Substance: BREXPIPRAZOLE
     Dosage: 1 MG, QD
     Route: 048

REACTIONS (4)
  - Drug interaction [Unknown]
  - Angioedema [Recovered/Resolved]
  - Lethargy [Recovered/Resolved]
  - Oral pain [Unknown]

NARRATIVE: CASE EVENT DATE: 20180110
